FAERS Safety Report 12786095 (Version 2)
Quarter: 2016Q3

REPORT INFORMATION
  Report Type: Spontaneous
  Country: US (occurrence: US)
  Receive Date: 20160927
  Receipt Date: 20160930
  Transmission Date: 20161109
  Serious: Yes (Other)
  Sender: FDA-Public Use
  Company Number: US-PFIZER INC-2016423037

PATIENT
  Age: 45 Year
  Sex: Female

DRUGS (12)
  1. ZYRTEC [Suspect]
     Active Substance: CETIRIZINE HYDROCHLORIDE
     Dosage: 10 MG, 1X/DAY
     Route: 048
  2. CLONAZEPAM. [Concomitant]
     Active Substance: CLONAZEPAM
     Dosage: 2 MG, 3X/DAY
     Route: 048
  3. ALDACTONE [Suspect]
     Active Substance: SPIRONOLACTONE
     Dosage: 50 MG, DAILY
     Route: 048
  4. TORSEMIDE. [Concomitant]
     Active Substance: TORSEMIDE
     Dosage: 100 MG, DAILY
  5. ZOFRAN [Concomitant]
     Active Substance: ONDANSETRON HYDROCHLORIDE
     Dosage: 4 MG, 3X/DAY (EVERY 8 HOURS AND PLACE ON TOP OF THE TONGUE WHERE IT WILL DISSOLVE, THEN SWALLOW)
     Route: 048
  6. VITAMIN B12 [Concomitant]
     Active Substance: CYANOCOBALAMIN
     Dosage: 50 UG, UNK
  7. VITAMIN D3 [Concomitant]
     Active Substance: CHOLECALCIFEROL
     Dosage: 400 IU, UNK
  8. INLYTA [Suspect]
     Active Substance: AXITINIB
     Indication: HEREDITARY HAEMORRHAGIC TELANGIECTASIA
     Dosage: 5 MG, 2X/DAY (TAKE 1 TABLET BY ORAL ROUTE EVERY 12 HOURS WITH A FULL GLASS (8 OZ) WATER)
     Route: 048
  9. METOLAZONE. [Concomitant]
     Active Substance: METOLAZONE
     Dosage: 1.25 MG, DAILY (TAKE 1/2 TABLET  BY ORAL ROUTE EVERY DAY)
     Route: 048
  10. POTASSIUM CHLORIDE. [Concomitant]
     Active Substance: POTASSIUM CHLORIDE
     Dosage: 7.5 MILLILITER EVERY 3 DAYS DILUTED IN ONE- HALF GLASS (120 ML) OF COLD WATER
     Route: 048
  11. METOPROLOL SUCCINATE. [Concomitant]
     Active Substance: METOPROLOL SUCCINATE
     Dosage: 100 MG, 2X/DAY (2 TABLETS)
     Route: 048
  12. TRAZODONE [Concomitant]
     Active Substance: TRAZODONE HYDROCHLORIDE
     Dosage: 50 MG, 3X/DAY (TAKE 1 TABLET BY ORAL ROUTE 3 TIMES EVERY DAY AFTER MEALS)
     Route: 048

REACTIONS (4)
  - Hypokalaemia [Unknown]
  - Diarrhoea [Unknown]
  - Product use issue [Unknown]
  - Cardiac failure [Unknown]
